FAERS Safety Report 6958411-6 (Version None)
Quarter: 2010Q3

REPORT INFORMATION
  Report Type: 
  Country: None (occurrence: None)
  Receive Date: 20100831
  Receipt Date: 20091125
  Transmission Date: 20110219
  Serious: Yes (Hospitalization, Other)
  Sender: FDA-Public Use
  Company Number: GB-ROCHE-671283

PATIENT
  Sex: Female

DRUGS (14)
  1. MYCOPHENOLATE MOFETIL [Suspect]
     Indication: PRODUCT USED FOR UNKNOWN INDICATION
     Route: 065
     Dates: start: 20080919
  2. MYCOPHENOLATE MOFETIL [Suspect]
     Route: 065
  3. ARANESP [Suspect]
     Route: 058
     Dates: start: 20060601, end: 20070826
  4. ARANESP [Suspect]
     Route: 058
  5. ARANESP [Suspect]
     Route: 058
     Dates: start: 20081016, end: 20081109
  6. ARANESP [Suspect]
     Route: 058
     Dates: start: 20081110, end: 20081123
  7. ARANESP [Suspect]
     Route: 058
     Dates: start: 20081124, end: 20081201
  8. EPREX [Suspect]
     Route: 042
     Dates: start: 20080207, end: 20080313
  9. EPREX [Suspect]
     Route: 042
     Dates: start: 20080317, end: 20080917
  10. TACROLIMUS [Suspect]
     Indication: PRODUCT USED FOR UNKNOWN INDICATION
     Route: 065
     Dates: start: 20080919
  11. TACROLIMUS [Suspect]
     Route: 065
  12. TACROLIMUS [Suspect]
     Dosage: FREQUENCY REPORTED AS '1 DAYS'
     Route: 065
  13. TACROLIMUS [Suspect]
     Route: 065
  14. TACROLIMUS [Suspect]
     Dosage: FREQUENCY REPORTED AS '1 DAYS'.
     Route: 065

REACTIONS (4)
  - ANTI-ERYTHROPOIETIN ANTIBODY NEGATIVE [None]
  - APLASIA PURE RED CELL [None]
  - DRUG INEFFECTIVE [None]
  - RENAL TRANSPLANT [None]
